FAERS Safety Report 21302777 (Version 1)
Quarter: 2022Q3

REPORT INFORMATION
  Report Type: Spontaneous
  Country: FR (occurrence: FR)
  Receive Date: 20220907
  Receipt Date: 20220907
  Transmission Date: 20221027
  Serious: Yes (Death, Life-Threatening, Other)
  Sender: FDA-Public Use
  Company Number: None

PATIENT
  Age: 77 Year
  Sex: Male
  Weight: 75 kg

DRUGS (8)
  1. PIPERACILLIN SODIUM\TAZOBACTAM SODIUM [Suspect]
     Active Substance: PIPERACILLIN SODIUM\TAZOBACTAM SODIUM
     Indication: Escherichia bacteraemia
     Dosage: 4 G, 3X/DAY (4G/0.5G EVERY 8 HOURS)
     Route: 042
     Dates: start: 20220609, end: 20220614
  2. CARBOPLATIN [Suspect]
     Active Substance: CARBOPLATIN
     Indication: Mesothelioma
     Dosage: 500 MG
     Route: 042
     Dates: start: 20220511, end: 20220602
  3. GEMZAR [Suspect]
     Active Substance: GEMCITABINE HYDROCHLORIDE
     Indication: Mesothelioma
     Dosage: 1990 MG
     Route: 042
     Dates: start: 20220511, end: 20220602
  4. OXYCODONE [Concomitant]
     Active Substance: OXYCODONE
     Indication: Pain
     Dosage: 10 MG, 2X/DAY
     Route: 048
     Dates: start: 20220501, end: 20220609
  5. HALOPERIDOL DECANOATE [Concomitant]
     Active Substance: HALOPERIDOL DECANOATE
     Indication: Prophylaxis of nausea and vomiting
     Dosage: 10 MG, 1X/DAY
     Route: 030
     Dates: start: 20220610, end: 20220613
  6. PANTOPRAZOLE [Concomitant]
     Active Substance: PANTOPRAZOLE
     Indication: Peritoneal disorder
     Dosage: 40 MG, 1X/DAY
     Route: 042
     Dates: start: 20220610, end: 20220629
  7. INNOHEP [Concomitant]
     Active Substance: TINZAPARIN SODIUM
     Indication: Pulmonary embolism
     Dosage: 13000 IU, 1X/DAY
     Route: 058
     Dates: start: 20220607, end: 20220623
  8. ONDANSETRON [Concomitant]
     Active Substance: ONDANSETRON
     Indication: Prophylaxis of nausea and vomiting
     Dosage: 8 MG, 1X/DAY
     Route: 042
     Dates: start: 20220610, end: 20220613

REACTIONS (2)
  - General physical health deterioration [Fatal]
  - Thrombocytopenia [Recovering/Resolving]

NARRATIVE: CASE EVENT DATE: 20220613
